FAERS Safety Report 4844713-6 (Version None)
Quarter: 2005Q4

REPORT INFORMATION
  Report Type: 
  Country: None (occurrence: None)
  Receive Date: 20051128
  Receipt Date: 20051111
  Transmission Date: 20060501
  Serious: Yes (Life-Threatening, Hospitalization)
  Sender: FDA-Public Use
  Company Number: GXBR2005US01712

PATIENT
  Age: 44 Year
  Sex: Male

DRUGS (3)
  1. THIORIDAZINE HCL TABLETS USP (NGX) (THIORIDAZINE) TABLET [Suspect]
     Indication: PSYCHOTIC DISORDER
     Dosage: 100 MG, TID, ORAL
     Route: 048
  2. VANCOMYCIN [Suspect]
  3. DAPTOMYCIN (DAPTOMYCIN) [Suspect]

REACTIONS (5)
  - DRUG INTERACTION [None]
  - INTUBATION [None]
  - RESPIRATORY DISORDER [None]
  - SINUSITIS [None]
  - STAPHYLOCOCCAL INFECTION [None]
